FAERS Safety Report 10456407 (Version 1)
Quarter: 2014Q3

REPORT INFORMATION
  Report Type: Spontaneous
  Country: US (occurrence: None)
  Receive Date: 20140822
  Receipt Date: 20140822
  Transmission Date: 20150326
  Serious: Yes (Other)
  Sender: FDA-Public Use
  Company Number: PR-AE13-001359

PATIENT
  Age: 44 Year
  Sex: Female
  Weight: 61.69 kg

DRUGS (9)
  1. CARISOPRODOL (SOMA) [Concomitant]
  2. ALESSE 28 [Concomitant]
     Active Substance: ETHINYL ESTRADIOL\LEVONORGESTREL
  3. PRENATAL VITAMINS [Concomitant]
     Active Substance: VITAMINS
  4. CELEXA [Suspect]
     Active Substance: CITALOPRAM HYDROBROMIDE
     Indication: DEPRESSION
     Route: 048
     Dates: start: 2011, end: 20130923
  5. TAGAMET [Suspect]
     Active Substance: CIMETIDINE
     Indication: ABDOMINAL PAIN UPPER
     Route: 048
     Dates: start: 20130905, end: 201309
  6. PARACETAMOL (ACETAMINOPHEN) [Concomitant]
     Active Substance: ACETAMINOPHEN
  7. DICYCLOMINE HYDROCHLORIDE (BENTYL) [Concomitant]
  8. VICODIN [Concomitant]
     Active Substance: ACETAMINOPHEN\HYDROCODONE BITARTRATE
  9. FERROUS GLUCONATE [Concomitant]
     Active Substance: FERROUS GLUCONATE

REACTIONS (6)
  - Swelling [None]
  - Hyperhidrosis [None]
  - Depression [None]
  - Heart rate increased [None]
  - Weight increased [None]
  - Suicidal ideation [None]

NARRATIVE: CASE EVENT DATE: 201309
